FAERS Safety Report 6001691-4 (Version None)
Quarter: 2008Q4

REPORT INFORMATION
  Report Type: 
  Country: None (occurrence: None)
  Receive Date: 20081215
  Receipt Date: 20081201
  Transmission Date: 20090506
  Serious: No
  Sender: FDA-Public Use
  Company Number: US-B.I. PHARMACEUTICALS,INC./RIDGEFIELD-2008-BP-18063BP

PATIENT
  Sex: Male

DRUGS (7)
  1. SPIRIVA [Suspect]
     Indication: BRONCHITIS CHRONIC
     Dosage: 18MCG
     Route: 055
     Dates: start: 20081120, end: 20081201
  2. BACITRACIN, OPTH GEL [Concomitant]
     Indication: EYE INFECTION
     Route: 061
     Dates: start: 20081125
  3. GENTEAL LUBRICATING GEL [Concomitant]
     Indication: DRY EYE
     Route: 061
     Dates: start: 20081123
  4. GENTEAL LUBRICATING GEL [Concomitant]
     Indication: OCULAR HYPERAEMIA
  5. AVODART [Concomitant]
     Indication: BENIGN PROSTATIC HYPERPLASIA
     Route: 048
  6. FLOMAX [Concomitant]
     Indication: BENIGN PROSTATIC HYPERPLASIA
     Route: 048
  7. OMEPRAZOLE [Concomitant]
     Indication: GASTROOESOPHAGEAL REFLUX DISEASE
     Route: 048

REACTIONS (5)
  - DRY EYE [None]
  - EYE INFECTION [None]
  - EYE PAIN [None]
  - OCULAR HYPERAEMIA [None]
  - VISION BLURRED [None]
